FAERS Safety Report 5165367-8 (Version None)
Quarter: 2006Q4

REPORT INFORMATION
  Report Type: 
  Country: None (occurrence: None)
  Receive Date: 20061128
  Receipt Date: 20061115
  Transmission Date: 20070319
  Serious: Yes (Life-Threatening)
  Sender: FDA-Public Use
  Company Number: 2006129594

PATIENT
  Age: 75 Year
  Sex: Female

DRUGS (13)
  1. LYRICA [Suspect]
     Dosage: 600 MG (150 MG, 4 IN 1 D), ORAL
     Route: 048
     Dates: start: 20060818, end: 20060908
  2. OXYCONTIN [Suspect]
     Dosage: 20 MG (20 MG, 1 IN 1 D), ORAL
     Route: 048
  3. BUFLOMEDIL (BUFLOMEDIL) [Concomitant]
  4. NICARDIPINE HYDROCHLORIDE [Concomitant]
  5. LASIX [Concomitant]
  6. FLECAINIDE ACETATE [Concomitant]
  7. IKOREL (NICORANDIL) [Concomitant]
  8. PRAVASTATIN [Concomitant]
  9. OMEPRAZOLE [Concomitant]
  10. IRBESARTAN [Concomitant]
  11. METFORMIN HCL [Concomitant]
  12. IMOVANE (ZOPICLONE) [Concomitant]
  13. CLONAZEPAM [Concomitant]

REACTIONS (2)
  - ANGIONEUROTIC OEDEMA [None]
  - ASTHMA [None]
